FAERS Safety Report 4323145-3 (Version None)
Quarter: 2004Q1

REPORT INFORMATION
  Report Type: 
  Country: None (occurrence: None)
  Receive Date: 20040322
  Receipt Date: 20040310
  Transmission Date: 20041129
  Serious: Yes (Death)
  Sender: FDA-Public Use
  Company Number: S03-USA-02894-01

PATIENT
  Age: 18 Year
  Sex: Female

DRUGS (4)
  1. CELEXA [Suspect]
     Indication: DEPRESSION
     Dosage: 20 MG QD PO
     Route: 048
     Dates: start: 20020706, end: 20020707
  2. CELEXA [Suspect]
     Indication: DEPRESSION
     Dosage: 40 MG ONCE PO
     Route: 048
     Dates: start: 20020708, end: 20020708
  3. ALLERGY MEDICATION [Concomitant]
  4. EFFEXOR [Concomitant]

REACTIONS (3)
  - ASPHYXIA [None]
  - COMPLETED SUICIDE [None]
  - ECCHYMOSIS [None]
